FAERS Safety Report 6752326-4 (Version None)
Quarter: 2010Q2

REPORT INFORMATION
  Report Type: 
  Country: None (occurrence: None)
  Receive Date: 20100602
  Receipt Date: 20100521
  Transmission Date: 20101027
  Serious: Yes (Hospitalization)
  Sender: FDA-Public Use
  Company Number: GXKR2010IT05803

PATIENT
  Sex: Female

DRUGS (2)
  1. ALPRAZOLAM (NGX) [Suspect]
     Dosage: UNK
     Route: 065
  2. PAROXETINE HCL [Suspect]
     Route: 065

REACTIONS (1)
  - THERAPEUTIC AGENT TOXICITY [None]
